FAERS Safety Report 16908066 (Version 1)
Quarter: 2019Q4

REPORT INFORMATION
  Report Type: Spontaneous
  Country: US (occurrence: US)
  Receive Date: 20191011
  Receipt Date: 20191011
  Transmission Date: 20200122
  Serious: Yes (Other)
  Sender: FDA-Public Use
  Company Number: US-ELI_LILLY_AND_COMPANY-US201910001431

PATIENT
  Sex: Male
  Weight: 112.5 kg

DRUGS (3)
  1. CIALIS [Suspect]
     Active Substance: TADALAFIL
     Indication: ERECTILE DYSFUNCTION
     Dosage: UNK, UNKNOWN
     Route: 065
     Dates: start: 20040604, end: 20080131
  2. VIAGRA [Suspect]
     Active Substance: SILDENAFIL CITRATE
     Indication: ERECTILE DYSFUNCTION
     Dosage: UNK, UNKNOWN
     Route: 065
     Dates: start: 20140318, end: 20141212
  3. LEVITRA [Concomitant]
     Active Substance: VARDENAFIL HYDROCHLORIDE
     Indication: ERECTILE DYSFUNCTION
     Dosage: 20 MG, MONTHLY (1/M)
     Dates: start: 20101210, end: 20111027

REACTIONS (6)
  - Lung disorder [Unknown]
  - Malignant melanoma [Unknown]
  - Squamous cell carcinoma [Recovered/Resolved]
  - Deafness neurosensory [Unknown]
  - Atrioventricular block [Unknown]
  - Prostate cancer [Unknown]

NARRATIVE: CASE EVENT DATE: 20131022
